FAERS Safety Report 8525952 (Version 2)
Quarter: 2012Q4

REPORT INFORMATION
  Report Type: 
  Country: BR (occurrence: BR)
  Receive Date: 20120423
  Receipt Date: 20121025
  Transmission Date: 20130627
  Serious: Yes (Other)
  Sender: FDA-Public Use
  Company Number: BR-ASTRAZENECA-2012SE24344

PATIENT
  Sex: Male

DRUGS (7)
  1. METOPROLOL TARTRATE [Suspect]
     Dosage: Daily
     Route: 065
     Dates: start: 201203, end: 2012
  2. BRILINTA [Suspect]
     Route: 048
     Dates: start: 2012, end: 2012
  3. BRILINTA [Suspect]
     Route: 048
     Dates: start: 2012
  4. ASA [Concomitant]
  5. SIMVASTATIN [Concomitant]
  6. ANALOPRIL [Concomitant]
  7. CILOSTASOL [Concomitant]

REACTIONS (4)
  - Haemorrhoids [Recovered/Resolved]
  - Renal failure [Not Recovered/Not Resolved]
  - Fistula [Not Recovered/Not Resolved]
  - Haemorrhage [Recovered/Resolved]
